FAERS Safety Report 9292677 (Version 2)
Quarter: 2013Q3

REPORT INFORMATION
  Report Type: Spontaneous
  Country: ES (occurrence: ES)
  Receive Date: 20130516
  Receipt Date: 20130703
  Transmission Date: 20140515
  Serious: Yes (Death, Hospitalization)
  Sender: FDA-Public Use
  Company Number: ES-ELI_LILLY_AND_COMPANY-ES201305004277

PATIENT
  Age: 67 Year
  Sex: Male

DRUGS (1)
  1. PEMETREXED [Suspect]
     Indication: NON-SMALL CELL LUNG CANCER
     Dosage: 730 MG/M2, UNK
     Route: 042

REACTIONS (2)
  - Febrile neutropenia [Fatal]
  - Pulmonary sepsis [Not Recovered/Not Resolved]
